FAERS Safety Report 10986039 (Version 1)
Quarter: 2015Q1

REPORT INFORMATION
  Report Type: Spontaneous
  Country: US (occurrence: None)
  Receive Date: 20150313
  Receipt Date: 20150313
  Transmission Date: 20150721
  Serious: Yes (Other)
  Sender: FDA-Public Use
  Company Number: 1485275

PATIENT
  Sex: 0

DRUGS (1)
  1. XOLAIR [Suspect]
     Active Substance: OMALIZUMAB
     Indication: ASTHMA
     Route: 058
     Dates: start: 20140202, end: 20141001

REACTIONS (2)
  - Headache [None]
  - Arthralgia [None]

NARRATIVE: CASE EVENT DATE: 20140201
